FAERS Safety Report 20155942 (Version 6)
Quarter: 2022Q3

REPORT INFORMATION
  Report Type: Report from Study
  Country: CA (occurrence: CA)
  Receive Date: 20211207
  Receipt Date: 20220920
  Transmission Date: 20221027
  Serious: Yes (Other)
  Sender: FDA-Public Use
  Company Number: CA-TAKEDA-2021TUS016425

PATIENT
  Age: 33 Year
  Sex: Female

DRUGS (21)
  1. VEDOLIZUMAB [Suspect]
     Active Substance: VEDOLIZUMAB
     Indication: Crohn^s disease
     Dosage: 300 MILLIGRAM
     Route: 042
     Dates: start: 20210309
  2. VEDOLIZUMAB [Suspect]
     Active Substance: VEDOLIZUMAB
     Dosage: 300 MILLIGRAM
     Route: 042
  3. VEDOLIZUMAB [Suspect]
     Active Substance: VEDOLIZUMAB
     Dosage: 300 MILLIGRAM
     Route: 042
  4. VEDOLIZUMAB [Suspect]
     Active Substance: VEDOLIZUMAB
     Dosage: 300 MILLIGRAM
     Route: 042
  5. VEDOLIZUMAB [Suspect]
     Active Substance: VEDOLIZUMAB
     Dosage: 300 MILLIGRAM
     Route: 042
  6. VEDOLIZUMAB [Suspect]
     Active Substance: VEDOLIZUMAB
     Dosage: 300 MILLIGRAM
     Route: 042
  7. VEDOLIZUMAB [Suspect]
     Active Substance: VEDOLIZUMAB
     Dosage: 300 MILLIGRAM
     Route: 042
  8. ESTROGENS [Concomitant]
     Active Substance: ESTROGENS
     Dosage: UNK
  9. GLYBURIDE [Concomitant]
     Active Substance: GLYBURIDE
     Indication: Diabetes mellitus
     Dosage: 5 MILLIGRAM
     Route: 048
  10. CYMBALTA [Concomitant]
     Active Substance: DULOXETINE HYDROCHLORIDE
     Indication: Depression
     Dosage: UNK
  11. TOPIRAMATE [Concomitant]
     Active Substance: TOPIRAMATE
     Indication: Migraine
     Dosage: UNK
  12. FOLIC ACID [Concomitant]
     Active Substance: FOLIC ACID
     Indication: Anaemia
     Dosage: UNK
     Route: 048
  13. NORTRIPTYLINE [Concomitant]
     Active Substance: NORTRIPTYLINE
     Indication: Fibromyalgia
     Dosage: 30 MILLIGRAM
     Route: 048
  14. LORAZEPAM [Concomitant]
     Active Substance: LORAZEPAM
     Indication: Insomnia
     Dosage: 12 MILLIGRAM
     Route: 048
  15. MELATONIN [Concomitant]
     Active Substance: MELATONIN
     Indication: Insomnia
     Dosage: UNK
  16. METHOTREXATE [Concomitant]
     Active Substance: METHOTREXATE
     Dosage: 10 MILLIGRAM
     Route: 058
  17. TOPIRAMATE [Concomitant]
     Active Substance: TOPIRAMATE
     Dosage: 20 MILLIGRAM
     Route: 048
  18. DULOXETINE [Concomitant]
     Active Substance: DULOXETINE
     Dosage: 120 MILLIGRAM
     Route: 048
  19. Reactine [Concomitant]
     Dosage: 10 MILLIGRAM
     Route: 048
  20. ESTROGEL [Concomitant]
     Active Substance: ESTRADIOL
     Dosage: UNK
     Route: 061
  21. VITAMIN C [Concomitant]
     Active Substance: ASCORBIC ACID
     Dosage: UNK
     Route: 048

REACTIONS (16)
  - Crohn^s disease [Unknown]
  - Cholecystectomy [Unknown]
  - Abscess [Unknown]
  - Migraine [Unknown]
  - Diarrhoea [Unknown]
  - Dyschezia [Unknown]
  - Lung hyperinflation [Unknown]
  - Pain [Unknown]
  - Abdominal pain upper [Unknown]
  - Treatment noncompliance [Unknown]
  - Vomiting [Unknown]
  - Anal fissure [Unknown]
  - Arthralgia [Unknown]
  - Influenza [Unknown]
  - Nausea [Recovered/Resolved]
  - Drug ineffective [Unknown]

NARRATIVE: CASE EVENT DATE: 20210309
